FAERS Safety Report 20989532 (Version 1)
Quarter: 2022Q2

REPORT INFORMATION
  Report Type: Spontaneous
  Country: FR (occurrence: FR)
  Receive Date: 20220621
  Receipt Date: 20220621
  Transmission Date: 20220721
  Serious: Yes (Other)
  Sender: FDA-Public Use
  Company Number: FR-BRISTOL-MYERS SQUIBB COMPANY-2022-026493

PATIENT
  Age: 53 Year
  Sex: Male
  Weight: 78 kg

DRUGS (2)
  1. NULOJIX [Suspect]
     Active Substance: BELATACEPT
     Indication: Product used for unknown indication
     Dosage: INITIATION REGIMEN: 5 MG/KG EVERY 2 WEEKS ON 5 OCCASIONS (S0, S2, S4, S6, S8)
     Route: 050
     Dates: start: 202111
  2. NULOJIX [Suspect]
     Active Substance: BELATACEPT
     Dosage: MAINTENANCE REGIMEN: 5 MG/KG EVERY 4 WEEKS FROM S12 ONWARDS
     Route: 050

REACTIONS (4)
  - Tremor [Unknown]
  - Insomnia [Unknown]
  - Nervous system disorder [Recovered/Resolved]
  - Deafness bilateral [Recovered/Resolved]
